FAERS Safety Report 17666885 (Version 1)
Quarter: 2020Q2

REPORT INFORMATION
  Report Type: Spontaneous
  Country: US (occurrence: US)
  Receive Date: 20200414
  Receipt Date: 20200414
  Transmission Date: 20200713
  Serious: No
  Sender: FDA-Public Use
  Company Number: US-JAZZ-2019-US-014085

PATIENT
  Sex: Female

DRUGS (14)
  1. VITAMIN D3 [Concomitant]
     Active Substance: CHOLECALCIFEROL
     Dosage: 1000 U
     Dates: start: 20120701
  2. XYREM [Concomitant]
     Active Substance: SODIUM OXYBATE
     Dosage: 4.5 G, BID
     Route: 048
     Dates: start: 201210
  3. SUNOSI [Suspect]
     Active Substance: SOLRIAMFETOL
     Indication: SOMNOLENCE
     Dosage: UNK
     Dates: end: 20190904
  4. XYREM [Concomitant]
     Active Substance: SODIUM OXYBATE
     Indication: NARCOLEPSY
     Dosage: 2.25 G, BID
     Dates: start: 201209, end: 201209
  5. PRENATAL FORMULA [Concomitant]
     Dosage: UNK
     Dates: start: 201205
  6. VITAMIN E [Concomitant]
     Active Substance: .ALPHA.-TOCOPHEROL
     Dosage: 100 U
     Dates: start: 20120701
  7. DEXTROAMPHETAMINE. [Concomitant]
     Active Substance: DEXTROAMPHETAMINE
     Dosage: 10 MG
     Dates: start: 20090901
  8. MACA [Concomitant]
     Dosage: 500 MG
  9. BETA CAROTENE. [Concomitant]
     Active Substance: BETA CAROTENE
     Dosage: 1000 UU
     Dates: start: 20120701
  10. CALCIUM [Concomitant]
     Active Substance: CALCIUM
     Dosage: 500 MG
     Dates: start: 20120701
  11. SPRINTEC [Concomitant]
     Active Substance: ETHINYL ESTRADIOL\NORGESTIMATE
     Dosage: UNK
     Dates: start: 20120301, end: 20140101
  12. XYREM [Concomitant]
     Active Substance: SODIUM OXYBATE
     Indication: CATAPLEXY
     Dosage: DOSE ADJUSTMENT
     Dates: start: 201210, end: 201210
  13. MULTIVITAMINS WITH IRON [Concomitant]
     Active Substance: IRON\VITAMINS
     Dosage: UNK
     Dates: start: 20120701, end: 20150501
  14. EFFEXOR XR [Concomitant]
     Active Substance: VENLAFAXINE HYDROCHLORIDE
     Dosage: 75 MG
     Dates: start: 20100901, end: 20121101

REACTIONS (1)
  - Drug ineffective [Unknown]
